FAERS Safety Report 8922584 (Version 1)
Quarter: 2012Q4

REPORT INFORMATION
  Report Type: 
  Country: IT (occurrence: IT)
  Receive Date: 20121123
  Receipt Date: 20121123
  Transmission Date: 20130627
  Serious: Yes (Hospitalization, Other)
  Sender: FDA-Public Use
  Company Number: IT-ROCHE-1159466

PATIENT
  Age: 81 Year
  Sex: Female
  Weight: 60 kg

DRUGS (5)
  1. VEMURAFENIB [Suspect]
     Indication: MALIGNANT MELANOMA
     Route: 048
     Dates: start: 20120907, end: 20121018
  2. LASIX [Concomitant]
     Indication: OEDEMA
     Route: 048
     Dates: start: 20120814
  3. PANTORC [Concomitant]
     Indication: PROPHYLAXIS AGAINST GASTROINTESTINAL ULCER
     Route: 048
     Dates: start: 20120814
  4. METOPROLOL [Concomitant]
     Indication: ATRIAL FIBRILLATION
     Route: 048
     Dates: start: 20120814
  5. CLEXANE [Concomitant]
     Indication: ATRIAL FIBRILLATION
     Route: 058
     Dates: start: 20120814

REACTIONS (2)
  - Pain [Not Recovered/Not Resolved]
  - Dyspnoea [Recovered/Resolved]
